FAERS Safety Report 19832103 (Version 1)
Quarter: 2021Q3

REPORT INFORMATION
  Report Type: Spontaneous
  Country: US (occurrence: US)
  Receive Date: 20210915
  Receipt Date: 20210915
  Transmission Date: 20211014
  Serious: Yes (Other)
  Sender: FDA-Public Use
  Company Number: None

PATIENT
  Age: 40 Year
  Sex: Female

DRUGS (1)
  1. REGEN?COV [Suspect]
     Active Substance: CASIRIVIMAB\IMDEVIMAB
     Indication: COVID-19
     Dosage: ?          OTHER FREQUENCY:Q5MIN X4;?
     Route: 058
     Dates: start: 20210910, end: 20210910

REACTIONS (10)
  - Bronchial irritation [None]
  - Chest pain [None]
  - Atelectasis [None]
  - Pleuritic pain [None]
  - Injection site pain [None]
  - Back pain [None]
  - Nausea [None]
  - Dizziness [None]
  - Headache [None]
  - Productive cough [None]

NARRATIVE: CASE EVENT DATE: 20210910
